FAERS Safety Report 7399046-3 (Version None)
Quarter: 2011Q1

REPORT INFORMATION
  Report Type: 
  Country: None (occurrence: None)
  Receive Date: 20110328
  Receipt Date: 20110318
  Transmission Date: 20110831
  Serious: Yes (Death)
  Sender: FDA-Public Use
  Company Number: DKLU1069199

PATIENT
  Age: 14 Year
  Sex: Male

DRUGS (2)
  1. SABRIL [Suspect]
     Indication: EPILEPSY
     Dosage: 3 TABLETS, AM, ORAL; 2 TABLETS PM, ORAL
     Route: 048
     Dates: start: 20101217, end: 20110301
  2. SABRIL [Suspect]
     Indication: EPILEPSY
     Dosage: 3 TABLETS, AM, ORAL; 2 TABLETS PM, ORAL
     Route: 048
     Dates: start: 20101217, end: 20110301

REACTIONS (1)
  - DEATH [None]
